FAERS Safety Report 14245223 (Version 1)
Quarter: 2017Q4

REPORT INFORMATION
  Report Type: Spontaneous
  Country: US (occurrence: US)
  Receive Date: 20171202
  Receipt Date: 20171202
  Transmission Date: 20180321
  Serious: Yes (Death, Other)
  Sender: FDA-Public Use
  Company Number: US-BRISTOL-MYERS SQUIBB COMPANY-BMS-2017-108987

PATIENT
  Age: 84 Year
  Sex: Male

DRUGS (1)
  1. OPDIVO [Suspect]
     Active Substance: NIVOLUMAB
     Indication: CHOLANGIOCARCINOMA
     Dosage: 1 DF, UNK
     Route: 042
     Dates: start: 20170801, end: 20171108

REACTIONS (9)
  - Death [Fatal]
  - Adverse event [Unknown]
  - Liver function test abnormal [Unknown]
  - Somnolence [Unknown]
  - Hypophagia [Unknown]
  - Fatigue [Unknown]
  - Speech disorder [Unknown]
  - Blood bilirubin abnormal [Unknown]
  - Product use in unapproved indication [Unknown]

NARRATIVE: CASE EVENT DATE: 20171108
